FAERS Safety Report 4865105-X (Version None)
Quarter: 2005Q4

REPORT INFORMATION
  Report Type: 
  Country: None (occurrence: None)
  Receive Date: 20051223
  Receipt Date: 20051216
  Transmission Date: 20060501
  Serious: Yes (Death)
  Sender: FDA-Public Use
  Company Number: JP-AVENTIS-200513847JP

PATIENT
  Age: 60 Year
  Sex: Female

DRUGS (9)
  1. ARAVA [Suspect]
     Indication: RHEUMATOID ARTHRITIS
     Dates: start: 20040729, end: 20051215
  2. GASTER [Concomitant]
  3. ALFAROL [Concomitant]
  4. SELBEX [Concomitant]
  5. MEDROL [Concomitant]
  6. BENET [Concomitant]
  7. ASPARA K [Concomitant]
  8. LENDORMIN [Concomitant]
  9. CLINORIL [Concomitant]

REACTIONS (5)
  - DIARRHOEA [None]
  - GASTROENTERITIS [None]
  - HYPOGLYCAEMIA [None]
  - LOSS OF CONSCIOUSNESS [None]
  - RENAL IMPAIRMENT [None]
